FAERS Safety Report 8785951 (Version 1)
Quarter: 2012Q4

REPORT INFORMATION
  Report Type: 
  Country: FR (occurrence: FR)
  Receive Date: 20120914
  Receipt Date: 20120914
  Transmission Date: 20130627
  Serious: Yes (Hospitalization)
  Sender: FDA-Public Use
  Company Number: FR-BAXTER-2012BAX016384

PATIENT
  Age: 49 Year
  Sex: Male

DRUGS (1)
  1. HOLOXAN [Suspect]
     Indication: SARCOMA
     Route: 042
     Dates: start: 20120814, end: 20120817

REACTIONS (4)
  - Encephalopathy [Recovering/Resolving]
  - Febrile bone marrow aplasia [Not Recovered/Not Resolved]
  - Hypercalcaemia [Unknown]
  - Renal failure acute [Unknown]
